FAERS Safety Report 8311788-1 (Version None)
Quarter: 2012Q1

REPORT INFORMATION
  Report Type: 
  Country: None (occurrence: None)
  Receive Date: 20120315
  Receipt Date: 20110527
  Transmission Date: 20120608
  Serious: Yes (Hospitalization)
  Sender: FDA-Public Use
  Company Number: PHHY2011US44190

PATIENT
  Age: 57 Year
  Sex: Female

DRUGS (5)
  1. PAXIL [Concomitant]
  2. GILENYA [Suspect]
     Indication: MULTIPLE SCLEROSIS
     Dosage: 0.5 MG, QD, ORAL
     Route: 048
     Dates: start: 20110516, end: 20110517
  3. BACLOFEN [Concomitant]
  4. GABAPENTIN [Concomitant]
  5. NUVIGIL [Concomitant]

REACTIONS (1)
  - BRADYCARDIA [None]
